FAERS Safety Report 17737057 (Version 2)
Quarter: 2020Q2

REPORT INFORMATION
  Report Type: Spontaneous
  Country: IT (occurrence: IT)
  Receive Date: 20200502
  Receipt Date: 20200508
  Transmission Date: 20200714
  Serious: Yes (Other)
  Sender: FDA-Public Use
  Company Number: IT-ACCORD-180628

PATIENT
  Age: 3 Decade
  Sex: Male

DRUGS (4)
  1. BUPROPION/BUPROPION HYDROCHLORIDE [Suspect]
     Active Substance: BUPROPION HYDROCHLORIDE
     Indication: SEXUAL DYSFUNCTION
     Dosage: 150 MILLIGRAM DAILY
     Route: 065
  2. TRAZODONE [Suspect]
     Active Substance: TRAZODONE HYDROCHLORIDE
     Indication: SEXUAL DYSFUNCTION
     Dosage: 40 MILLIGRAM DAILY
     Route: 065
  3. CITALOPRAM [Suspect]
     Active Substance: CITALOPRAM HYDROBROMIDE
     Indication: PANIC DISORDER
     Dosage: 20 MILLIGRAM DAILY
     Route: 065
  4. MIRTAZAPINE. [Suspect]
     Active Substance: MIRTAZAPINE
     Indication: SEXUAL DYSFUNCTION
     Route: 065

REACTIONS (9)
  - Condition aggravated [Unknown]
  - Loss of libido [Not Recovered/Not Resolved]
  - Sexual dysfunction [Recovered/Resolved]
  - Ejaculation failure [Not Recovered/Not Resolved]
  - Anxiety [Recovered/Resolved]
  - Depressed mood [Recovered/Resolved]
  - Off label use [Unknown]
  - Drug ineffective [Unknown]
  - Erectile dysfunction [Not Recovered/Not Resolved]
